FAERS Safety Report 13666429 (Version 1)
Quarter: 2017Q2

REPORT INFORMATION
  Report Type: Spontaneous
  Country: US (occurrence: US)
  Receive Date: 20170619
  Receipt Date: 20170619
  Transmission Date: 20170830
  Serious: Yes (Other)
  Sender: FDA-Public Use
  Company Number: US-ROCHE-1374124

PATIENT
  Sex: Female

DRUGS (1)
  1. XELODA [Suspect]
     Active Substance: CAPECITABINE
     Indication: GALLBLADDER CANCER
     Route: 048

REACTIONS (6)
  - Fatigue [Unknown]
  - Blood pressure decreased [Unknown]
  - Chills [Unknown]
  - Blood culture positive [Unknown]
  - Abdominal pain [Unknown]
  - Nausea [Unknown]
